FAERS Safety Report 20439096 (Version 1)
Quarter: 2022Q1

REPORT INFORMATION
  Report Type: Spontaneous
  Country: US (occurrence: None)
  Receive Date: 20220204
  Receipt Date: 20220204
  Transmission Date: 20220423
  Serious: Yes (Hospitalization)
  Sender: FDA-Public Use
  Company Number: None

PATIENT
  Age: 82 Year
  Sex: Female
  Weight: 68.85 kg

DRUGS (1)
  1. DAPTOMYCIN [Suspect]
     Active Substance: DAPTOMYCIN
     Indication: Post procedural infection
     Dosage: FREQUENCY : DAILY;?
     Route: 042
     Dates: start: 20220120, end: 20220203

REACTIONS (5)
  - Blood creatine phosphokinase increased [None]
  - Nausea [None]
  - Asthenia [None]
  - Dyspepsia [None]
  - Feeling abnormal [None]

NARRATIVE: CASE EVENT DATE: 20220131
